FAERS Safety Report 8462955-8 (Version None)
Quarter: 2012Q2

REPORT INFORMATION
  Report Type: 
  Country: None (occurrence: None)
  Receive Date: 20120625
  Receipt Date: 20120619
  Transmission Date: 20120825
  Serious: Yes (Death)
  Sender: FDA-Public Use
  Company Number: US-GLAXOSMITHKLINE-A0932442A

PATIENT
  Sex: Male
  Weight: 132.7 kg

DRUGS (9)
  1. AVANDIA [Suspect]
     Indication: DIABETES MELLITUS
     Dosage: 4MG TWICE PER DAY
     Route: 048
     Dates: end: 20080715
  2. NORVASC [Concomitant]
  3. LASIX [Concomitant]
  4. ZESTRIL [Concomitant]
  5. AMARYL [Concomitant]
  6. ZOCOR [Concomitant]
  7. PROCRIT [Concomitant]
  8. SYNTHROID [Concomitant]
  9. WELCHOL [Concomitant]

REACTIONS (1)
  - DEATH [None]
